FAERS Safety Report 19458675 (Version 2)
Quarter: 2022Q1

REPORT INFORMATION
  Report Type: Spontaneous
  Country: GB (occurrence: GB)
  Receive Date: 20210624
  Receipt Date: 20220304
  Transmission Date: 20220423
  Serious: Yes (Other)
  Sender: FDA-Public Use
  Company Number: None

PATIENT
  Age: 28 Year
  Sex: Female
  Weight: 122 kg

DRUGS (9)
  1. NITROFURANTOIN [Suspect]
     Active Substance: NITROFURANTOIN
     Dosage: UNK
     Dates: start: 20210607
  2. NITROFURANTOIN [Suspect]
     Active Substance: NITROFURANTOIN
     Dosage: 50 MILLIGRAM, BID
     Dates: start: 20210604, end: 20210607
  3. ARIPIPRAZOLE [Concomitant]
     Active Substance: ARIPIPRAZOLE
     Indication: Ill-defined disorder
     Dosage: 1 DOSAGE FORM, QD (TAKE ONE DAILY)
     Dates: start: 20200504
  4. CHLORPHENIRAMINE MALEATE [Concomitant]
     Active Substance: CHLORPHENIRAMINE MALEATE
     Indication: Ill-defined disorder
     Dosage: 4 MILLIGRAM, QD
     Dates: start: 20210607, end: 20210610
  5. FEXOFENADINE [Concomitant]
     Active Substance: FEXOFENADINE HYDROCHLORIDE
     Indication: Ill-defined disorder
     Dosage: 1 DOSAGE FORM, QD (TAKE ONE DAILY)
     Dates: start: 20210607
  6. METFORMIN [Concomitant]
     Active Substance: METFORMIN HYDROCHLORIDE
     Indication: Hirsutism
     Dosage: 1 DOSAGE FORM, QD (TAKE ONE TABLET DAILY FOR HIRSUTISM AS ADVISED)
     Dates: start: 20210305
  7. NITROFURANTOIN [Concomitant]
     Active Substance: NITROFURANTOIN
     Indication: Ill-defined disorder
     Dosage: 1 DOSAGE FORM, BID (TAKE ONE TWICE DAILY)
     Dates: start: 20210604, end: 20210607
  8. SERTRALINE [Concomitant]
     Active Substance: SERTRALINE HYDROCHLORIDE
     Indication: Ill-defined disorder
     Dosage: 1 DOSAGE FORM, BID (1 TO BE TAKEN TWICE DAILY)
     Dates: start: 20200205
  9. TRAMADOL [Concomitant]
     Active Substance: TRAMADOL
     Indication: Ill-defined disorder
     Dosage: UNK (1-2 CAPSULES UP TO FOUR TIMES A DAY AS REQUIRED)
     Dates: start: 20200826

REACTIONS (3)
  - Swelling face [Recovered/Resolved]
  - Rash macular [Unknown]
  - Pruritus [Unknown]

NARRATIVE: CASE EVENT DATE: 20210617
